FAERS Safety Report 6684963-X (Version None)
Quarter: 2010Q2

REPORT INFORMATION
  Report Type: 
  Country: None (occurrence: None)
  Receive Date: 20100416
  Receipt Date: 20100405
  Transmission Date: 20101027
  Serious: Yes (Other)
  Sender: FDA-Public Use
  Company Number: US-SANOFI-AVENTIS-2010SA019986

PATIENT
  Sex: Male

DRUGS (2)
  1. LANTUS [Suspect]
     Indication: TYPE 2 DIABETES MELLITUS
     Dosage: DOSE:26 UNIT(S)
     Route: 058
  2. OPTICLICK [Suspect]

REACTIONS (2)
  - EYE HAEMORRHAGE [None]
  - VISUAL IMPAIRMENT [None]
